FAERS Safety Report 24275056 (Version 1)
Quarter: 2024Q3

REPORT INFORMATION
  Report Type: Spontaneous
  Country: US (occurrence: US)
  Receive Date: 20240902
  Receipt Date: 20240902
  Transmission Date: 20241016
  Serious: Yes (Other)
  Sender: JIANGSU HENGRUI MEDICINE
  Company Number: US-Jiangsu Hengrui Medicine Co., Ltd.-2161091

PATIENT
  Age: 15 Year

DRUGS (6)
  1. CYCLOPHOSPHAMIDE [Suspect]
     Active Substance: CYCLOPHOSPHAMIDE
     Indication: B precursor type acute leukaemia
  2. PEG/L-ASPARAGINASE [Suspect]
     Active Substance: PEGASPARGASE
  3. DOXORUBICIN HYDROCHLORIDE [Suspect]
     Active Substance: DOXORUBICIN HYDROCHLORIDE
  4. VINCRISTINE SULFATE [Concomitant]
     Active Substance: VINCRISTINE SULFATE
  5. METHOTREXATE [Suspect]
     Active Substance: METHOTREXATE
  6. CYTARABINE [Suspect]
     Active Substance: CYTARABINE

REACTIONS (1)
  - Hepatopulmonary syndrome [Unknown]
